FAERS Safety Report 7433754-0 (Version None)
Quarter: 2011Q2

REPORT INFORMATION
  Report Type: 
  Country: None (occurrence: None)
  Receive Date: 20110424
  Receipt Date: 20110414
  Transmission Date: 20111010
  Serious: No
  Sender: FDA-Public Use
  Company Number: US-ROXANE LABORATORIES, INC.-2011-RO-00553RO

PATIENT
  Age: 70 Year
  Sex: Female

DRUGS (4)
  1. SIMVASTATIN [Concomitant]
     Indication: BLOOD CHOLESTEROL INCREASED
  2. COZAAR [Concomitant]
     Indication: HYPERTENSION
  3. FLUTICASONE PROPIONATE [Suspect]
     Indication: SINUS CONGESTION
     Route: 045
     Dates: start: 20110322, end: 20110407
  4. ATENOLOL [Concomitant]
     Indication: HYPERTENSION

REACTIONS (1)
  - ANOSMIA [None]
